FAERS Safety Report 24571995 (Version 2)
Quarter: 2024Q4

REPORT INFORMATION
  Report Type: Spontaneous
  Country: RU (occurrence: RU)
  Receive Date: 20241101
  Receipt Date: 20241113
  Transmission Date: 20250114
  Serious: Yes (Other)
  Sender: ORGANON
  Company Number: RU-ORGANON-O2410RUS002108

PATIENT
  Age: 41 Year
  Sex: Female

DRUGS (1)
  1. ETONOGESTREL [Suspect]
     Active Substance: ETONOGESTREL
     Dosage: 1 IMPLANT
     Route: 059
     Dates: start: 202312

REACTIONS (10)
  - Pelvic inflammatory disease [Not Recovered/Not Resolved]
  - Ovarian fibroma [Not Recovered/Not Resolved]
  - Ovarian cyst [Not Recovered/Not Resolved]
  - Intermenstrual bleeding [Recovered/Resolved]
  - Intermenstrual bleeding [Recovered/Resolved]
  - Intermenstrual bleeding [Recovered/Resolved]
  - Intermenstrual bleeding [Recovered/Resolved]
  - Menstruation delayed [Not Recovered/Not Resolved]
  - Swelling [Not Recovered/Not Resolved]
  - Product use issue [Unknown]

NARRATIVE: CASE EVENT DATE: 20231201
